FAERS Safety Report 6445041-8 (Version None)
Quarter: 2009Q4

REPORT INFORMATION
  Report Type: 
  Country: None (occurrence: None)
  Receive Date: 20091118
  Receipt Date: 20091106
  Transmission Date: 20100525
  Serious: Yes (Death)
  Sender: FDA-Public Use
  Company Number: US-PFIZER INC-2009294754

PATIENT
  Sex: Male

DRUGS (2)
  1. TIKOSYN [Suspect]
     Dosage: 0.5 MG, UNK
  2. PROCARDIA [Suspect]

REACTIONS (1)
  - DEATH [None]
